FAERS Safety Report 5844234-8 (Version None)
Quarter: 2008Q3

REPORT INFORMATION
  Report Type: 
  Country: None (occurrence: None)
  Receive Date: 20080813
  Receipt Date: 20080801
  Transmission Date: 20090109
  Serious: Yes (Other)
  Sender: FDA-Public Use
  Company Number: US-PFIZER INC-2008065731

PATIENT
  Sex: Female
  Weight: 66.7 kg

DRUGS (4)
  1. CHANTIX [Suspect]
     Indication: SMOKING CESSATION THERAPY
     Route: 048
  2. ANTIHYPERTENSIVES [Concomitant]
     Indication: BLOOD PRESSURE
  3. CHOLESTEROL [Concomitant]
     Indication: BLOOD CHOLESTEROL
  4. ANTI-ASTHMATICS [Concomitant]
     Indication: ASTHMA

REACTIONS (2)
  - ANGER [None]
  - HOMICIDAL IDEATION [None]
